FAERS Safety Report 21145155 (Version 2)
Quarter: 2023Q1

REPORT INFORMATION
  Report Type: Report from Study
  Country: US (occurrence: US)
  Receive Date: 20220729
  Receipt Date: 20230131
  Transmission Date: 20230418
  Serious: No
  Sender: FDA-Public Use
  Company Number: US-ACADIA PHARMACEUTICALS INC.-ACA-2022-PIM-002275

PATIENT
  Sex: Female

DRUGS (13)
  1. NUPLAZID [Suspect]
     Active Substance: PIMAVANSERIN TARTRATE
     Indication: Hallucination
     Dosage: 34 MILLIGRAM, QD
     Route: 048
  2. NUPLAZID [Suspect]
     Active Substance: PIMAVANSERIN TARTRATE
     Indication: Delusion
     Dosage: 34 MILLIGRAM EVERY OTHER DAY
     Route: 065
  3. NUPLAZID [Suspect]
     Active Substance: PIMAVANSERIN TARTRATE
     Indication: Parkinson^s disease psychosis
  4. BD PEN MINI MIS [Concomitant]
  5. GABAPENTIN [Concomitant]
     Active Substance: GABAPENTIN
  6. GLYCOPYRROLATE [Concomitant]
     Active Substance: GLYCOPYRROLATE
  7. QUETIAPINE [Concomitant]
     Active Substance: QUETIAPINE
  8. MYRBETRIQ [Concomitant]
     Active Substance: MIRABEGRON
  9. DONEPEZIL [Concomitant]
     Active Substance: DONEPEZIL
  10. ATENOLOL [Concomitant]
     Active Substance: ATENOLOL
  11. LISINOPRIL [Concomitant]
     Active Substance: LISINOPRIL
  12. ALBUTEROL SULFATE [Concomitant]
     Active Substance: ALBUTEROL SULFATE
  13. RASAGILINE MESYLATE [Concomitant]
     Active Substance: RASAGILINE MESYLATE

REACTIONS (5)
  - Disturbance in attention [Not Recovered/Not Resolved]
  - Inappropriate schedule of product administration [Not Recovered/Not Resolved]
  - Speech disorder [Not Recovered/Not Resolved]
  - Somnolence [Not Recovered/Not Resolved]
  - Hallucination, visual [Unknown]
